FAERS Safety Report 5681630-6 (Version None)
Quarter: 2008Q1

REPORT INFORMATION
  Report Type: 
  Country: None (occurrence: None)
  Receive Date: 20080326
  Receipt Date: 20070226
  Transmission Date: 20080703
  Serious: No
  Sender: FDA-Public Use
  Company Number: US-BAYER-US-2007-007061

PATIENT
  Age: 40 Year
  Sex: Female
  Weight: 61 kg

DRUGS (7)
  1. MIRENA [Suspect]
     Indication: CONTRACEPTION
     Route: 015
     Dates: start: 20060213
  2. MIRENA [Suspect]
     Route: 015
     Dates: start: 20020101, end: 20060213
  3. WELLBUTRIN [Concomitant]
     Route: 048
  4. ZOLOFT [Concomitant]
     Route: 048
  5. AMBIEN [Concomitant]
     Route: 048
  6. KLONOPIN [Concomitant]
     Dosage: UNIT DOSE: 0.5 MG
     Route: 048
  7. TYLENOL W/ CODEINE NO. 3 [Concomitant]
     Route: 048

REACTIONS (4)
  - ABDOMINAL DISTENSION [None]
  - MENOMETRORRHAGIA [None]
  - MOOD SWINGS [None]
  - PANIC ATTACK [None]
